FAERS Safety Report 22167214 (Version 2)
Quarter: 2023Q2

REPORT INFORMATION
  Report Type: Spontaneous
  Country: US (occurrence: US)
  Receive Date: 20230403
  Receipt Date: 20230414
  Transmission Date: 20230721
  Serious: Yes (Other)
  Sender: FDA-Public Use
  Company Number: US-AMGEN-USASP2023053075

PATIENT
  Sex: Female

DRUGS (2)
  1. PROLIA [Suspect]
     Active Substance: DENOSUMAB
     Indication: Product used for unknown indication
     Dosage: 60 MILLIGRAM, Q6MO
     Route: 058
  2. CALCIUM CITRATE [Concomitant]
     Active Substance: CALCIUM CITRATE
     Dosage: UNK
     Route: 065

REACTIONS (6)
  - Type 2 diabetes mellitus [Unknown]
  - Cellulitis [Unknown]
  - Animal scratch [Unknown]
  - Bone loss [Unknown]
  - Intentional product misuse [Unknown]
  - Arthralgia [Unknown]

NARRATIVE: CASE EVENT DATE: 20100101
